FAERS Safety Report 18516222 (Version 2)
Quarter: 2020Q4

REPORT INFORMATION
  Report Type: Spontaneous
  Country: JP (occurrence: JP)
  Receive Date: 20201118
  Receipt Date: 20201130
  Transmission Date: 20210114
  Serious: Yes (Other)
  Sender: FDA-Public Use
  Company Number: NVSC2020JP305465

PATIENT
  Age: 53 Year
  Sex: Male

DRUGS (6)
  1. TS-1 [Suspect]
     Active Substance: GIMERACIL\OTERACIL\TEGAFUR
     Indication: NON-SMALL CELL LUNG CANCER STAGE IIIA
     Dosage: UNK
     Route: 065
     Dates: start: 202006, end: 202007
  2. DURVALUMAB. [Suspect]
     Active Substance: DURVALUMAB
     Indication: NON-SMALL CELL LUNG CANCER STAGE IIIA
     Dosage: UNK, CYCLIC (14 CYCLES)
     Route: 065
     Dates: start: 201905, end: 201912
  3. CARBOPLATIN. [Suspect]
     Active Substance: CARBOPLATIN
     Dosage: UNK
     Route: 065
     Dates: start: 202006, end: 202007
  4. DOCETAXEL. [Suspect]
     Active Substance: DOCETAXEL
     Indication: NON-SMALL CELL LUNG CANCER STAGE IIIA
     Dosage: UNK
     Route: 065
     Dates: start: 201912, end: 202002
  5. PACLITAXEL. [Suspect]
     Active Substance: PACLITAXEL
     Indication: NON-SMALL CELL LUNG CANCER STAGE IIIA
     Dosage: UNK (WEEKLY)
     Route: 065
     Dates: start: 201903, end: 201904
  6. CARBOPLATIN. [Suspect]
     Active Substance: CARBOPLATIN
     Indication: NON-SMALL CELL LUNG CANCER STAGE IIIA
     Dosage: UNK (WEEKLY)
     Route: 065
     Dates: start: 201903, end: 201904

REACTIONS (6)
  - Product use in unapproved indication [Unknown]
  - Metastases to skin [Unknown]
  - Herpes zoster [Recovered/Resolved]
  - Malignant neoplasm progression [Unknown]
  - Non-small cell lung cancer stage IIIA [Unknown]
  - Metastases to central nervous system [Unknown]
